FAERS Safety Report 21668272 (Version 2)
Quarter: 2022Q4

REPORT INFORMATION
  Report Type: Spontaneous
  Country: None (occurrence: A1)
  Receive Date: 20221201
  Receipt Date: 20221201
  Transmission Date: 20230112
  Serious: No
  Sender: FDA-Public Use
  Company Number: A1-Hill Dermaceuticals, Inc.-2135431

PATIENT
  Sex: Female

DRUGS (1)
  1. TOLAK [Suspect]
     Active Substance: FLUOROURACIL
     Route: 061

REACTIONS (1)
  - Eye disorder [Recovered/Resolved]
